FAERS Safety Report 9519805 (Version 1)
Quarter: 2013Q1

REPORT INFORMATION
  Report Type: Spontaneous
  Country: US (occurrence: None)
  Receive Date: 20130305
  Receipt Date: 20130305
  Transmission Date: 20140127
  Serious: Yes (Other)
  Sender: FDA-Public Use
  Company Number: 163-21880-12113807

PATIENT
  Age: 72 Year
  Sex: Male

DRUGS (12)
  1. REVLIMID [Suspect]
     Indication: PLASMA CELL MYELOMA
     Dosage: 10 MG, 28 IN 28 D, PO
     Route: 048
     Dates: start: 201208
  2. ASPIRIN (ACETYLSALICYLIC ACID) (TABLETS) [Concomitant]
  3. IRON (IRON) (TABLETS) [Concomitant]
  4. ATENOLOL (ATENOLOL) (TABLETS) [Concomitant]
  5. MULTIVITAMINS (MULTIVITAMINS) (TABLETS) [Concomitant]
  6. OSTEO-BI-FLEX (CHONDROITIN SODIUM SULFATE W/GLUCOSAMINE HCL) (TABLETS)? [Concomitant]
  7. LORATIDINE (LORATADINE) (10 MILLIGRAM, TABLETS)? [Concomitant]
  8. AMOXICILLIN (AMOXICILLIN) (500 MILLIGRAM, CAPSULES)? [Concomitant]
  9. VENTOLIN HFA (SALBUTAMOL SULFATE) (INHALANT) [Concomitant]
  10. ZOMETA (ZOLEDRONIC ACID) (INJECTION) [Concomitant]
  11. SULFAMETHOXAZOLE TMP DS (BACTRIM) (TABLETS)? [Concomitant]
  12. DEXAMETHASONE (DEXAMETHASONE ) (4 MILLIGRAM, TABLETS) [Concomitant]

REACTIONS (1)
  - Pancytopenia [None]
